FAERS Safety Report 10066499 (Version 2)
Quarter: 2014Q2

REPORT INFORMATION
  Report Type: Report from Study
  Country: TW (occurrence: TW)
  Receive Date: 20140408
  Receipt Date: 20140509
  Transmission Date: 20141212
  Serious: Yes (Other)
  Sender: FDA-Public Use
  Company Number: TW-ASTELLAS-2014US003480

PATIENT
  Age: 57 Year
  Sex: Male

DRUGS (3)
  1. ERLOTINIB [Suspect]
     Indication: NON-SMALL CELL LUNG CANCER
     Route: 065
     Dates: start: 20090323, end: 20101227
  2. ERLOTINIB [Suspect]
     Route: 065
     Dates: start: 20090220, end: 20090309
  3. SILIMIN [Concomitant]
     Indication: LIVER FUNCTION TEST ABNORMAL
     Dosage: UNK UNK, UNKNOWN FREQ.
     Route: 065
     Dates: start: 20090310, end: 20090324

REACTIONS (2)
  - Epilepsy [Recovered/Resolved]
  - Convulsion [Recovered/Resolved]
